FAERS Safety Report 13729987 (Version 1)
Quarter: 2017Q3

REPORT INFORMATION
  Report Type: Spontaneous
  Country: US (occurrence: US)
  Receive Date: 20170707
  Receipt Date: 20170707
  Transmission Date: 20171127
  Serious: Yes (Hospitalization, Other)
  Sender: FDA-Public Use
  Company Number: US-JNJFOC-20170414016

PATIENT
  Age: 51 Year
  Sex: Female

DRUGS (5)
  1. XARELTO [Suspect]
     Active Substance: RIVAROXABAN
     Indication: ANTIPHOSPHOLIPID SYNDROME
     Dosage: 15 MG AND 20 MG
     Route: 048
     Dates: start: 201506, end: 20150626
  2. XARELTO [Suspect]
     Active Substance: RIVAROXABAN
     Indication: ANTIPHOSPHOLIPID SYNDROME
     Dosage: 15 MG AND 20 MG
     Route: 048
     Dates: start: 20140526, end: 20140712
  3. XARELTO [Suspect]
     Active Substance: RIVAROXABAN
     Indication: ANTIPHOSPHOLIPID SYNDROME
     Dosage: 15 MG AND 20 MG
     Route: 048
     Dates: start: 20140513, end: 201405
  4. XARELTO [Suspect]
     Active Substance: RIVAROXABAN
     Indication: ANTIPHOSPHOLIPID SYNDROME
     Dosage: 15 MG AND 20 MG
     Route: 048
     Dates: start: 201407, end: 20140725
  5. XARELTO [Suspect]
     Active Substance: RIVAROXABAN
     Indication: ANTIPHOSPHOLIPID SYNDROME
     Dosage: 15 MG AND 20 MG
     Route: 048
     Dates: start: 20150221, end: 20150611

REACTIONS (7)
  - Epistaxis [Unknown]
  - Uterine haemorrhage [Unknown]
  - Product use in unapproved indication [Unknown]
  - Thrombocytopenia [Unknown]
  - Rectal haemorrhage [Unknown]
  - Off label use [Unknown]
  - Gastrointestinal haemorrhage [Unknown]

NARRATIVE: CASE EVENT DATE: 20140513
